FAERS Safety Report 10687652 (Version 1)
Quarter: 2014Q4

REPORT INFORMATION
  Report Type: Spontaneous
  Country: US (occurrence: None)
  Receive Date: 20141231
  Receipt Date: 20141231
  Transmission Date: 20150529
  Serious: Yes (Life-Threatening, Hospitalization)
  Sender: FDA-Public Use
  Company Number: None

PATIENT
  Age: 64 Year
  Sex: Female
  Weight: 108.86 kg

DRUGS (1)
  1. CLONIDINE. [Suspect]
     Active Substance: CLONIDINE
     Indication: HYPERTENSION
     Dosage: 1 TAB BID ORAL
     Route: 048
     Dates: start: 20141225, end: 20141229

REACTIONS (4)
  - Nausea [None]
  - Chest pain [None]
  - Blood pressure increased [None]
  - Vomiting [None]

NARRATIVE: CASE EVENT DATE: 20141228
